FAERS Safety Report 4639937-7 (Version None)
Quarter: 2005Q2

REPORT INFORMATION
  Report Type: 
  Country: None (occurrence: None)
  Receive Date: 20050415
  Receipt Date: 20050401
  Transmission Date: 20051028
  Serious: Yes (Life-Threatening)
  Sender: FDA-Public Use
  Company Number: 2005049021

PATIENT
  Age: 56 Year
  Sex: Female

DRUGS (7)
  1. CELEBREX [Suspect]
     Indication: RHEUMATOID ARTHRITIS
     Dosage: 400 MG (200 MG, 2 IN 1 D), ORAL
     Route: 048
  2. PREGABALIN (PREGABALIN) [Concomitant]
  3. FENTANYL [Concomitant]
  4. ALLOPURINOL [Concomitant]
  5. PAROXETINE HCL [Concomitant]
  6. AMITRIPTYLINE HCL [Concomitant]
  7. CETIRIZINE HCL [Concomitant]

REACTIONS (2)
  - ATRIAL FLUTTER [None]
  - SKIN ULCER [None]
